FAERS Safety Report 22005928 (Version 1)
Quarter: 2023Q1

REPORT INFORMATION
  Report Type: Spontaneous
  Country: US (occurrence: US)
  Receive Date: 20230217
  Receipt Date: 20230217
  Transmission Date: 20230417
  Serious: Yes (Other)
  Sender: FDA-Public Use
  Company Number: US-AMGEN-USASP2023025154

PATIENT
  Sex: Male

DRUGS (2)
  1. XGEVA [Suspect]
     Active Substance: DENOSUMAB
     Indication: Plasma cell myeloma
     Dosage: 120 MILLIGRAM
     Route: 065
     Dates: start: 202301
  2. XGEVA [Suspect]
     Active Substance: DENOSUMAB
     Indication: Metastases to bone

REACTIONS (2)
  - Renal impairment [Unknown]
  - Hypocalcaemia [Unknown]
